FAERS Safety Report 9293207 (Version 3)
Quarter: 2014Q2

REPORT INFORMATION
  Report Type: Spontaneous
  Country: US (occurrence: US)
  Receive Date: 20130516
  Receipt Date: 20140512
  Transmission Date: 20141212
  Serious: Yes (Disabling, Other)
  Sender: FDA-Public Use
  Company Number: US-009507513-1305USA005518

PATIENT
  Sex: Female
  Weight: 47.62 kg

DRUGS (4)
  1. FOSAMAX [Suspect]
     Indication: OSTEOPENIA
     Dosage: 70 MG, UNK
     Route: 048
     Dates: start: 2004, end: 20061115
  2. FOSAMAX [Suspect]
     Dosage: UNK
     Route: 048
     Dates: start: 2006
  3. ALENDRONATE SODIUM [Suspect]
     Indication: OSTEOPENIA
     Dosage: 70 MG, UNK
     Route: 048
     Dates: start: 20090418, end: 20110515
  4. LEVOTHYROXINE SODIUM [Concomitant]
     Indication: THYROID DISORDER
     Dosage: UNK
     Dates: start: 1999

REACTIONS (32)
  - Osteonecrosis of jaw [Unknown]
  - Depression [Unknown]
  - Blood cholesterol increased [Unknown]
  - Periodontal operation [Unknown]
  - Haematuria [Not Recovered/Not Resolved]
  - Intervertebral disc degeneration [Unknown]
  - Areflexia [Unknown]
  - Hysterectomy [Unknown]
  - Endometriosis [Unknown]
  - Uterine leiomyoma [Unknown]
  - Intraocular pressure increased [Unknown]
  - Hepatitis B virus test positive [Unknown]
  - Goitre [Not Recovered/Not Resolved]
  - Tooth fracture [Unknown]
  - Lung hyperinflation [Unknown]
  - Fatigue [Unknown]
  - Sjogren^s syndrome [Unknown]
  - Osteoarthritis [Unknown]
  - Biopsy bone [Unknown]
  - Hepatic lesion [Unknown]
  - Nephrolithiasis [Unknown]
  - Hepatic cyst [Unknown]
  - Exostosis of jaw [Unknown]
  - Fracture [Unknown]
  - Fracture [Unknown]
  - Dry mouth [Unknown]
  - Intestinal obstruction [Unknown]
  - Diarrhoea [Unknown]
  - Mouth ulceration [Unknown]
  - Arthralgia [Unknown]
  - Pain in extremity [Unknown]
  - Gastrooesophageal reflux disease [Unknown]
